FAERS Safety Report 8103583-3 (Version None)
Quarter: 2011Q4

REPORT INFORMATION
  Report Type: 
  Country: None (occurrence: None)
  Receive Date: 20111222
  Receipt Date: 20110819
  Transmission Date: 20120403
  Serious: Yes (Hospitalization)
  Sender: FDA-Public Use
  Company Number: US-IGSA-IG916

PATIENT
  Age: 68 Year
  Sex: Female
  Weight: 66 kg

DRUGS (11)
  1. CITRACAL [Concomitant]
  2. BACTRIM DS [Concomitant]
  3. FLEBOGAMMA [Suspect]
     Indication: HYPOGAMMAGLOBULINAEMIA
     Dosage: 25 G EVERY MONTH IV
     Route: 042
     Dates: start: 20110819, end: 20110819
  4. PREDNISONE [Concomitant]
  5. OMNEPRAZOL 20 MG [Concomitant]
  6. VITAMIN D [Concomitant]
  7. CITALOPRAM HYDROBROMIDE [Concomitant]
  8. FLEBOGAMMA [Suspect]
  9. CYTOXAN [Concomitant]
  10. CENTRUM [Concomitant]
  11. NORVASC [Concomitant]

REACTIONS (1)
  - CHEST PAIN [None]
